FAERS Safety Report 5303585-6 (Version None)
Quarter: 2007Q2

REPORT INFORMATION
  Report Type: 
  Country: None (occurrence: None)
  Receive Date: 20070420
  Receipt Date: 20070412
  Transmission Date: 20071010
  Serious: Yes (Other)
  Sender: FDA-Public Use
  Company Number: US-GENENTECH-239985

PATIENT
  Sex: Female

DRUGS (1)
  1. NUTROPIN AQ [Suspect]
     Indication: TURNER'S SYNDROME
     Dosage: 1.5 MG, QD
     Dates: start: 20000201, end: 20061101

REACTIONS (1)
  - MYOPIA [None]
